FAERS Safety Report 7430196-9 (Version None)
Quarter: 2011Q2

REPORT INFORMATION
  Report Type: 
  Country: None (occurrence: None)
  Receive Date: 20110421
  Receipt Date: 20100223
  Transmission Date: 20111010
  Serious: No
  Sender: FDA-Public Use
  Company Number: US-ASTRAZENECA-2010SE07866

PATIENT
  Age: 46 Year
  Sex: Female

DRUGS (7)
  1. TOPROL-XL [Suspect]
     Indication: ATRIAL FIBRILLATION
     Route: 048
     Dates: start: 20091101
  2. TOPROL-XL [Suspect]
     Route: 048
     Dates: start: 20100201
  3. TOPROL-XL [Suspect]
     Indication: HEART RATE INCREASED
     Route: 048
     Dates: start: 20091101
  4. DILTIAZEM [Concomitant]
     Indication: ATRIAL FIBRILLATION
  5. DILTIAZEM [Concomitant]
     Indication: HEART RATE INCREASED
  6. COUMADIN [Concomitant]
  7. TOPROL-XL [Suspect]
     Route: 048
     Dates: start: 20100201

REACTIONS (8)
  - DIARRHOEA [None]
  - PRURITUS [None]
  - WHEEZING [None]
  - PLATELET COUNT ABNORMAL [None]
  - AMNESIA [None]
  - OEDEMA PERIPHERAL [None]
  - RAYNAUD'S PHENOMENON [None]
  - FATIGUE [None]
